FAERS Safety Report 15887143 (Version 1)
Quarter: 2019Q1

REPORT INFORMATION
  Report Type: Spontaneous
  Country: US (occurrence: US)
  Receive Date: 20190130
  Receipt Date: 20190130
  Transmission Date: 20190417
  Serious: No
  Sender: FDA-Public Use
  Company Number: US-009507513-1901USA009417

PATIENT
  Age: 3 Year
  Sex: Female

DRUGS (1)
  1. ASMANEX HFA [Suspect]
     Active Substance: MOMETASONE FUROATE
     Indication: RESPIRATORY DISORDER
     Dosage: UNK, UNKNOWN
     Route: 055

REACTIONS (4)
  - Product administered to patient of inappropriate age [Unknown]
  - Product prescribing error [Unknown]
  - Product use issue [Unknown]
  - No adverse event [Unknown]
